FAERS Safety Report 7210334-3 (Version None)
Quarter: 2011Q1

REPORT INFORMATION
  Report Type: 
  Country: None (occurrence: None)
  Receive Date: 20110105
  Receipt Date: 20101227
  Transmission Date: 20110831
  Serious: Yes (Life-Threatening)
  Sender: FDA-Public Use
  Company Number: IT-BAXTER-2010BH030934

PATIENT
  Age: 78 Year
  Sex: Female

DRUGS (3)
  1. GAMMAGARD LIQUID [Suspect]
     Indication: POLYNEUROPATHY
     Route: 042
     Dates: start: 20100928, end: 20100929
  2. PRETERAX [Concomitant]
     Route: 048
  3. GAMMAGARD LIQUID [Suspect]
     Indication: OFF LABEL USE
     Route: 042
     Dates: start: 20100928, end: 20100929

REACTIONS (2)
  - DIZZINESS [None]
  - BLOOD PRESSURE SYSTOLIC DECREASED [None]
